FAERS Safety Report 5566390-1 (Version None)
Quarter: 2007Q4

REPORT INFORMATION
  Report Type: 
  Country: None (occurrence: None)
  Receive Date: 20071219
  Receipt Date: 20071210
  Transmission Date: 20080405
  Serious: Yes (Other)
  Sender: FDA-Public Use
  Company Number: DE-BAYER-200717894GPV

PATIENT
  Age: 58 Year
  Sex: Male

DRUGS (1)
  1. GADOVIST/ GADOBUTROL [Suspect]
     Indication: ANGIOGRAM
     Dosage: AS USED: 15 ML
     Route: 042
     Dates: start: 20071206, end: 20071206

REACTIONS (1)
  - BLOOD PRESSURE DECREASED [None]
